FAERS Safety Report 9463017 (Version 1)
Quarter: 2013Q3

REPORT INFORMATION
  Report Type: Report from Study
  Country: US (occurrence: US)
  Receive Date: 20130816
  Receipt Date: 20130816
  Transmission Date: 20140515
  Serious: Yes (Hospitalization, Other)
  Sender: FDA-Public Use
  Company Number: GXBR2013US001533

PATIENT
  Sex: Female
  Weight: 55.78 kg

DRUGS (3)
  1. ENOXAPARIN SODIUM [Suspect]
     Indication: PULMONARY EMBOLISM
     Dosage: 80 MG, QD
     Route: 058
     Dates: start: 201304
  2. CORTICOSTEROID NOS [Concomitant]
     Dosage: UNK DF, UNK
  3. OXYGEN [Concomitant]

REACTIONS (2)
  - Metastases to central nervous system [Not Recovered/Not Resolved]
  - Musculoskeletal disorder [Not Recovered/Not Resolved]
